FAERS Safety Report 12639744 (Version 1)
Quarter: 2016Q3

REPORT INFORMATION
  Report Type: Spontaneous
  Country: US (occurrence: US)
  Receive Date: 20160810
  Receipt Date: 20160810
  Transmission Date: 20161109
  Serious: No
  Sender: FDA-Public Use
  Company Number: US-SUN PHARMACEUTICAL INDUSTRIES LTD-2016US-112282

PATIENT
  Age: 43 Year
  Sex: Female

DRUGS (1)
  1. EURAX [Suspect]
     Active Substance: CROTAMITON
     Indication: DERMATITIS
     Dosage: UNK
     Route: 061
     Dates: start: 20160104, end: 20160104

REACTIONS (1)
  - Application site inflammation [Recovered/Resolved]

NARRATIVE: CASE EVENT DATE: 20160104
